FAERS Safety Report 7264490-1 (Version None)
Quarter: 2011Q1

REPORT INFORMATION
  Report Type: 
  Country: None (occurrence: None)
  Receive Date: 20110131
  Receipt Date: 20110125
  Transmission Date: 20110831
  Serious: No
  Sender: FDA-Public Use
  Company Number: US-PFIZER INC-2011018123

PATIENT
  Sex: Male
  Weight: 77.098 kg

DRUGS (4)
  1. TOVIAZ [Suspect]
     Indication: HYPERTONIC BLADDER
     Dosage: 8 MG, DAILY
     Route: 048
     Dates: start: 20080101
  2. CYMBALTA [Concomitant]
     Dosage: 30 MG, UNK
  3. LIPITOR [Concomitant]
     Dosage: UNK
  4. CRESTOR [Concomitant]
     Dosage: UNK

REACTIONS (5)
  - DEHYDRATION [None]
  - PRURITUS [None]
  - DRY MOUTH [None]
  - RED BLOOD CELL COUNT INCREASED [None]
  - URTICARIA [None]
